FAERS Safety Report 5890072-X (Version None)
Quarter: 2008Q3

REPORT INFORMATION
  Report Type: 
  Country: None (occurrence: None)
  Receive Date: 20080919
  Receipt Date: 20080902
  Transmission Date: 20090109
  Serious: No
  Sender: FDA-Public Use
  Company Number: US-B.I. PHARMACEUTICALS,INC./RIDGEFIELD-2008-BP-13986BP

PATIENT

DRUGS (1)
  1. SPIRIVA [Suspect]
     Route: 055

REACTIONS (2)
  - FATIGUE [None]
  - MYALGIA [None]
